FAERS Safety Report 11581435 (Version 1)
Quarter: 2015Q4

REPORT INFORMATION
  Report Type: Spontaneous
  Country: US (occurrence: US)
  Receive Date: 20151001
  Receipt Date: 20151001
  Transmission Date: 20160304
  Serious: No
  Sender: FDA-Public Use
  Company Number: US-ROCHE-680005

PATIENT
  Age: 56 Year
  Sex: Male

DRUGS (3)
  1. PEGASYS [Suspect]
     Active Substance: PEGINTERFERON ALFA-2A
     Indication: HEPATITIS C
     Dosage: FORM: PRE-FILLED SYRINGE
     Route: 058
  2. SUBOXONE [Concomitant]
     Active Substance: BUPRENORPHINE HYDROCHLORIDE\NALOXONE HYDROCHLORIDE
     Indication: DRUG WITHDRAWAL SYNDROME
     Route: 065
  3. RIBAVIRIN. [Suspect]
     Active Substance: RIBAVIRIN
     Indication: HEPATITIS C
     Dosage: DIVIDED DOSES
     Route: 048

REACTIONS (19)
  - Sleep disorder [Not Recovered/Not Resolved]
  - Vomiting [Not Recovered/Not Resolved]
  - Vision blurred [Unknown]
  - Weight decreased [Unknown]
  - Anxiety [Unknown]
  - Pruritus [Not Recovered/Not Resolved]
  - Pain in extremity [Unknown]
  - Muscle tightness [Unknown]
  - Back pain [Unknown]
  - Decreased appetite [Not Recovered/Not Resolved]
  - Blister [Unknown]
  - Epistaxis [Unknown]
  - Muscle twitching [Unknown]
  - Insomnia [Not Recovered/Not Resolved]
  - Nausea [Not Recovered/Not Resolved]
  - Mood swings [Unknown]
  - Headache [Unknown]
  - Influenza like illness [Unknown]
  - Feeling jittery [Unknown]

NARRATIVE: CASE EVENT DATE: 20100116
